FAERS Safety Report 16542538 (Version 2)
Quarter: 2019Q3

REPORT INFORMATION
  Report Type: Spontaneous
  Country: US (occurrence: US)
  Receive Date: 20190709
  Receipt Date: 20190726
  Transmission Date: 20191004
  Serious: Yes (Death, Hospitalization, Other)
  Sender: FDA-Public Use
  Company Number: US-CONCORDIA PHARMACEUTICALS INC.-E2B_00020184

PATIENT
  Age: 66 Year
  Sex: Female

DRUGS (1)
  1. PREDNISOLONE. [Suspect]
     Active Substance: PREDNISOLONE
     Dosage: CHRONIC USE OF PREDNISOLONE FOR 10 YEARS

REACTIONS (4)
  - Sepsis [Fatal]
  - Device related infection [Unknown]
  - Fistula [Fatal]
  - Multiple organ dysfunction syndrome [Fatal]
